FAERS Safety Report 5579439-7 (Version None)
Quarter: 2007Q4

REPORT INFORMATION
  Report Type: 
  Country: None (occurrence: None)
  Receive Date: 20071130
  Receipt Date: 20070629
  Transmission Date: 20080405
  Serious: No
  Sender: FDA-Public Use
  Company Number: US200707001423

PATIENT
  Age: 68 Year
  Sex: Male
  Weight: 90.7 kg

DRUGS (7)
  1. BYETTA [Suspect]
     Indication: TYPE 2 DIABETES MELLITUS
     Dosage: 5 UG, 2/D, SUBCUTANEOUS
     Route: 058
     Dates: start: 20070401
  2. INSULIN           (INSULIN) [Concomitant]
  3. ROSIGLITAZONE [Concomitant]
  4. METOPROLOL TARTRATE [Concomitant]
  5. LISINOPRIL [Concomitant]
  6. HYDROCHLOROTHIAZIDE [Concomitant]
  7. CYMBALTA [Concomitant]

REACTIONS (6)
  - BLOOD GLUCOSE INCREASED [None]
  - CATARACT [None]
  - CRYING [None]
  - DRUG EFFECT DECREASED [None]
  - INSOMNIA [None]
  - MUSCLE SPASMS [None]
